FAERS Safety Report 13410790 (Version 3)
Quarter: 2019Q3

REPORT INFORMATION
  Report Type: Spontaneous
  Country: US (occurrence: US)
  Receive Date: 20170406
  Receipt Date: 20190917
  Transmission Date: 20191004
  Serious: No
  Sender: FDA-Public Use
  Company Number: US-JNJFOC-20170308056

PATIENT
  Sex: Male

DRUGS (27)
  1. RISPERDAL [Suspect]
     Active Substance: RISPERIDONE
     Indication: OPPOSITIONAL DEFIANT DISORDER
     Route: 048
     Dates: end: 20120806
  2. RISPERIDONE. [Suspect]
     Active Substance: RISPERIDONE
     Route: 048
     Dates: start: 20090727
  3. RISPERIDONE. [Suspect]
     Active Substance: RISPERIDONE
     Indication: DEPRESSION
  4. RISPERDAL [Suspect]
     Active Substance: RISPERIDONE
     Indication: DEPRESSION
  5. RISPERIDONE. [Suspect]
     Active Substance: RISPERIDONE
     Indication: DEPRESSION
     Route: 048
     Dates: start: 20081209
  6. RISPERIDONE. [Suspect]
     Active Substance: RISPERIDONE
     Route: 048
     Dates: start: 20120409, end: 20120531
  7. RISPERIDONE. [Suspect]
     Active Substance: RISPERIDONE
     Indication: POST-TRAUMATIC STRESS DISORDER
  8. RISPERIDONE. [Suspect]
     Active Substance: RISPERIDONE
     Indication: ATTENTION DEFICIT/HYPERACTIVITY DISORDER
     Route: 048
     Dates: start: 20080710, end: 20080811
  9. RISPERIDONE. [Suspect]
     Active Substance: RISPERIDONE
     Indication: BLOOD ANTIDIURETIC HORMONE
     Route: 048
     Dates: end: 20120806
  10. RISPERIDONE. [Suspect]
     Active Substance: RISPERIDONE
     Indication: OPPOSITIONAL DEFIANT DISORDER
  11. RISPERDAL [Suspect]
     Active Substance: RISPERIDONE
     Indication: BEHAVIOUR DISORDER
  12. RISPERDAL [Suspect]
     Active Substance: RISPERIDONE
     Indication: POST-TRAUMATIC STRESS DISORDER
  13. RISPERIDONE. [Suspect]
     Active Substance: RISPERIDONE
     Indication: BEHAVIOUR DISORDER
     Route: 048
     Dates: start: 20090511, end: 20090713
  14. RISPERIDONE. [Suspect]
     Active Substance: RISPERIDONE
     Indication: POST-TRAUMATIC STRESS DISORDER
  15. RISPERIDONE. [Suspect]
     Active Substance: RISPERIDONE
     Indication: ATTENTION DEFICIT/HYPERACTIVITY DISORDER
     Route: 048
     Dates: start: 20090511, end: 20100720
  16. RISPERIDONE. [Suspect]
     Active Substance: RISPERIDONE
     Indication: POST-TRAUMATIC STRESS DISORDER
     Route: 048
     Dates: start: 20081210, end: 20090501
  17. RISPERIDONE. [Suspect]
     Active Substance: RISPERIDONE
     Route: 048
     Dates: start: 20111123, end: 20120330
  18. RISPERIDONE. [Suspect]
     Active Substance: RISPERIDONE
     Route: 048
     Dates: start: 20120707
  19. RISPERIDONE. [Suspect]
     Active Substance: RISPERIDONE
     Indication: DEPRESSION
     Dosage: VARYING DOSES FROM 1 TO 3 MG
     Route: 048
     Dates: start: 20101015, end: 20111025
  20. RISPERIDONE. [Suspect]
     Active Substance: RISPERIDONE
     Indication: ATTENTION DEFICIT/HYPERACTIVITY DISORDER
     Route: 048
     Dates: start: 20110825, end: 20110908
  21. RISPERIDONE. [Suspect]
     Active Substance: RISPERIDONE
     Indication: BEHAVIOUR DISORDER
  22. RISPERIDONE. [Suspect]
     Active Substance: RISPERIDONE
     Indication: BEHAVIOUR DISORDER
     Route: 048
     Dates: start: 20080910, end: 20090501
  23. RISPERDAL [Suspect]
     Active Substance: RISPERIDONE
     Indication: ATTENTION DEFICIT/HYPERACTIVITY DISORDER
     Route: 048
     Dates: start: 20070803, end: 20080601
  24. RISPERIDONE. [Suspect]
     Active Substance: RISPERIDONE
     Indication: OPPOSITIONAL DEFIANT DISORDER
     Route: 048
     Dates: start: 20080910, end: 20081109
  25. RISPERIDONE. [Suspect]
     Active Substance: RISPERIDONE
     Route: 048
     Dates: start: 20090826, end: 20100720
  26. RISPERIDONE. [Suspect]
     Active Substance: RISPERIDONE
     Route: 048
     Dates: start: 20110825, end: 20111025
  27. RISPERIDONE. [Suspect]
     Active Substance: RISPERIDONE
     Indication: OPPOSITIONAL DEFIANT DISORDER

REACTIONS (3)
  - Emotional distress [Unknown]
  - Gynaecomastia [Unknown]
  - Abnormal weight gain [Unknown]
